FAERS Safety Report 21017297 (Version 1)
Quarter: 2022Q2

REPORT INFORMATION
  Report Type: Spontaneous
  Country: US (occurrence: None)
  Receive Date: 20220627
  Receipt Date: 20220627
  Transmission Date: 20220720
  Serious: Yes (Disabling)
  Sender: FDA-Public Use
  Company Number: None

PATIENT
  Age: 95 Year
  Sex: Female
  Weight: 58.5 kg

DRUGS (5)
  1. HYDROCHLOROTHIAZIDE [Suspect]
     Active Substance: HYDROCHLOROTHIAZIDE
     Indication: Fluid retention
     Dosage: OTHER QUANTITY : 1 CAPSULE(S);?FREQUENCY : DAILY;?
     Route: 048
     Dates: start: 20211206, end: 20220108
  2. METOPROLOL SUCCINATE [Concomitant]
     Active Substance: METOPROLOL SUCCINATE
  3. SIMVASTATIN [Concomitant]
     Active Substance: SIMVASTATIN
  4. DYAZIDE [Concomitant]
     Active Substance: HYDROCHLOROTHIAZIDE\TRIAMTERENE
  5. MINERALS\VITAMINS [Concomitant]
     Active Substance: MINERALS\VITAMINS

REACTIONS (10)
  - Drug ineffective [None]
  - Condition aggravated [None]
  - Peripheral swelling [None]
  - Joint swelling [None]
  - Gait disturbance [None]
  - Hypertonic bladder [None]
  - Back pain [None]
  - Nausea [None]
  - Chest pain [None]
  - Scar pain [None]

NARRATIVE: CASE EVENT DATE: 20211206
